FAERS Safety Report 25521571 (Version 2)
Quarter: 2025Q3

REPORT INFORMATION
  Report Type: Spontaneous
  Country: US (occurrence: US)
  Receive Date: 20250706
  Receipt Date: 20250904
  Transmission Date: 20251020
  Serious: Yes (Other)
  Sender: SANOFI AVENTIS
  Company Number: US-SANOFI-02579018

PATIENT
  Age: 81 Year
  Sex: Female

DRUGS (1)
  1. MULTAQ [Suspect]
     Active Substance: DRONEDARONE
     Indication: Atrial fibrillation
     Dosage: 400 MG, BID (ONCE IN THE MORNING AFTER BREAKFAST AND ONCE IN THE EVENING AFTER DINNERTIME)
     Dates: start: 20250623, end: 20250706

REACTIONS (5)
  - Atrial fibrillation [Unknown]
  - Palpitations [Unknown]
  - Chest discomfort [Unknown]
  - Fatigue [Unknown]
  - Adverse reaction [Unknown]

NARRATIVE: CASE EVENT DATE: 20250601
